FAERS Safety Report 8772376 (Version 2)
Quarter: 2012Q4

REPORT INFORMATION
  Report Type: 
  Country: US (occurrence: US)
  Receive Date: 20120906
  Receipt Date: 20120925
  Transmission Date: 20130627
  Serious: Yes (Other)
  Sender: FDA-Public Use
  Company Number: US-AMGEN-USASP2012055247

PATIENT
  Age: 69 Year
  Sex: Female
  Weight: 77.1 kg

DRUGS (6)
  1. PROLIA [Suspect]
     Indication: BREAST CANCER
     Dosage: 60 mg, q6mo
     Route: 058
     Dates: start: 20120413
  2. LETROZOL [Concomitant]
  3. LITHIUM [Concomitant]
  4. VITAMIN D /00107901/ [Concomitant]
  5. PANTOPRAZOLE [Concomitant]
  6. FEMARA [Concomitant]
     Indication: BREAST CANCER
     Dosage: 2.5 mg, qd
     Route: 048
     Dates: start: 20120107

REACTIONS (5)
  - Fall [Not Recovered/Not Resolved]
  - Face injury [Not Recovered/Not Resolved]
  - Tooth fracture [Not Recovered/Not Resolved]
  - Loose tooth [Not Recovered/Not Resolved]
  - Device breakage [Not Recovered/Not Resolved]
